FAERS Safety Report 6576987-8 (Version None)
Quarter: 2010Q1

REPORT INFORMATION
  Report Type: 
  Country: None (occurrence: None)
  Receive Date: 20100210
  Receipt Date: 20100209
  Transmission Date: 20100710
  Serious: Yes (Hospitalization)
  Sender: FDA-Public Use
  Company Number: BR-B.I. PHARMACEUTICALS,INC./RIDGEFIELD-2010-BR-00136BR

PATIENT
  Sex: Male

DRUGS (5)
  1. SPIRIVA [Suspect]
     Indication: CHRONIC OBSTRUCTIVE PULMONARY DISEASE
     Dosage: 18 MCG
     Route: 055
     Dates: end: 20100103
  2. SYMBICORT [Concomitant]
     Dosage: NR
  3. CAPTOPRIL [Concomitant]
     Dosage: NR
  4. FURANA [Concomitant]
     Dosage: NR
  5. CARDIZEM [Concomitant]
     Dosage: NR

REACTIONS (1)
  - PNEUMONIA [None]
